FAERS Safety Report 5502726-5 (Version None)
Quarter: 2007Q4

REPORT INFORMATION
  Report Type: 
  Country: None (occurrence: None)
  Receive Date: 20071031
  Receipt Date: 20071023
  Transmission Date: 20080405
  Serious: Yes (Other)
  Sender: FDA-Public Use
  Company Number: CA-ASTRAZENECA-2007UW24886

PATIENT
  Age: 43 Year
  Sex: Male

DRUGS (4)
  1. NEXIUM [Suspect]
     Route: 048
  2. LYRICA [Concomitant]
  3. ATENOLOL [Concomitant]
     Route: 048
  4. RABEPRAZOLE SODIUM [Concomitant]

REACTIONS (1)
  - CONDITION AGGRAVATED [None]
